FAERS Safety Report 7952377-8 (Version None)
Quarter: 2011Q4

REPORT INFORMATION
  Report Type: 
  Country: None (occurrence: None)
  Receive Date: 20111201
  Receipt Date: 20111121
  Transmission Date: 20120403
  Serious: Yes (Hospitalization)
  Sender: FDA-Public Use
  Company Number: US-ELI_LILLY_AND_COMPANY-US201111007745

PATIENT
  Sex: Female

DRUGS (14)
  1. FORTEO [Suspect]
     Indication: OSTEOPOROSIS
     Dosage: 20 UG, QD
     Route: 065
     Dates: start: 20110516
  2. HYDROCHLOROTHIAZIDE [Concomitant]
     Dosage: 25 MG, QD
  3. FENTANYL [Concomitant]
     Dosage: UNK, OTHER
  4. FLEXERIL [Concomitant]
     Dosage: 5 MG, QD
  5. CALCIUM [Concomitant]
     Dosage: UNK, BID
  6. KLOR-CON M20 [Concomitant]
     Dosage: UNK, BID
  7. TRICOR [Concomitant]
     Dosage: 145 MG, QD
  8. ASPIRIN [Concomitant]
     Dosage: 81 MG, QD
  9. MULTI-VITAMINS [Concomitant]
     Dosage: UNK, BID
  10. EXCEDRIN (MIGRAINE) [Concomitant]
     Indication: HEADACHE
     Dosage: UNK, PRN
  11. SUPER CO-ENZYME Q10 [Concomitant]
     Dosage: 100 MG, QD
  12. LOVAZA [Concomitant]
     Dosage: 500 MG, BID
  13. CLONIDINE [Concomitant]
     Dosage: 0.2 MG, BID
  14. QUINAPRIL [Concomitant]
     Dosage: 40 MG, QD

REACTIONS (1)
  - SPINAL FUSION SURGERY [None]
